FAERS Safety Report 10857627 (Version 1)
Quarter: 2015Q1

REPORT INFORMATION
  Report Type: Spontaneous
  Country: US (occurrence: US)
  Receive Date: 20150223
  Receipt Date: 20150223
  Transmission Date: 20150721
  Serious: No
  Sender: FDA-Public Use
  Company Number: US-CELGENEUS-USA-2014095011

PATIENT
  Sex: Female
  Weight: 60.8 kg

DRUGS (2)
  1. REVLIMID [Suspect]
     Active Substance: LENALIDOMIDE
     Route: 048
     Dates: start: 201311
  2. REVLIMID [Suspect]
     Active Substance: LENALIDOMIDE
     Indication: PLASMA CELL MYELOMA
     Route: 048
     Dates: start: 201306, end: 2013

REACTIONS (4)
  - Urinary tract infection [Recovered/Resolved]
  - Rash [Unknown]
  - Weight increased [Unknown]
  - Contusion [Unknown]

NARRATIVE: CASE EVENT DATE: 2014
